FAERS Safety Report 10674519 (Version 2)
Quarter: 2015Q1

REPORT INFORMATION
  Report Type: Spontaneous
  Country: JP (occurrence: JP)
  Receive Date: 20141224
  Receipt Date: 20150115
  Transmission Date: 20150720
  Serious: Yes (Life-Threatening)
  Sender: FDA-Public Use
  Company Number: JP-PFIZER INC-2014350767

PATIENT
  Age: 80 Year
  Sex: Male
  Weight: 30 kg

DRUGS (2)
  1. ZYVOX [Suspect]
     Active Substance: LINEZOLID
     Indication: PROPHYLAXIS
     Dosage: 600 MG, 1X/DAY
     Route: 041
     Dates: start: 20141218, end: 20141221
  2. ZYVOX [Suspect]
     Active Substance: LINEZOLID
     Indication: RENAL DISORDER

REACTIONS (1)
  - Disseminated intravascular coagulation [Unknown]

NARRATIVE: CASE EVENT DATE: 20141218
